FAERS Safety Report 24444024 (Version 1)
Quarter: 2024Q4

REPORT INFORMATION
  Report Type: Spontaneous
  Country: US (occurrence: None)
  Receive Date: 20241015
  Receipt Date: 20241015
  Transmission Date: 20250114
  Serious: Yes (Hospitalization)
  Sender: Public
  Company Number: None

PATIENT
  Age: 72 Year
  Sex: Male
  Weight: 55 kg

DRUGS (1)
  1. APIXABAN [Suspect]
     Active Substance: APIXABAN
     Indication: Deep vein thrombosis
     Dosage: FREQUENCY : TWICE A DAY;?
     Route: 048
     Dates: start: 20240514

REACTIONS (4)
  - Pulmonary embolism [None]
  - Therapy interrupted [None]
  - Adenocarcinoma [None]
  - Metastases to central nervous system [None]

NARRATIVE: CASE EVENT DATE: 20240705
